FAERS Safety Report 18721805 (Version 1)
Quarter: 2021Q1

REPORT INFORMATION
  Report Type: Spontaneous
  Country: AU (occurrence: AU)
  Receive Date: 20210111
  Receipt Date: 20210111
  Transmission Date: 20210419
  Serious: Yes (Hospitalization, Other)
  Sender: FDA-Public Use
  Company Number: AU-LUPIN PHARMACEUTICALS INC.-2020-11547

PATIENT
  Age: 26 Year
  Sex: Female

DRUGS (6)
  1. MORPHINE [Suspect]
     Active Substance: MORPHINE
     Dosage: UNK
     Route: 058
  2. SYNTOCINON [Suspect]
     Active Substance: OXYTOCIN
     Indication: LABOUR INDUCTION
     Dosage: 10 INTERNATIONAL UNIT (10 IU OF OXYTOCIN [SYNTOCINON] IN 1L OF RINGER^S?LACTATE SOLUTION (HARTMANN^S
     Route: 065
  3. MORPHINE [Suspect]
     Active Substance: MORPHINE
     Indication: PAIN
     Dosage: UNK
     Route: 065
  4. CLEXANE [Suspect]
     Active Substance: ENOXAPARIN SODIUM
     Indication: ANTICOAGULANT THERAPY
     Dosage: UNK
     Route: 065
  5. METARAMINOL [Suspect]
     Active Substance: METARAMINOL
     Indication: VASOCONSTRICTION
     Dosage: UNK
     Route: 065
  6. HARTMANN^S SOLUTION [Suspect]
     Active Substance: CALCIUM CHLORIDE\POTASSIUM CHLORIDE\SODIUM CHLORIDE\SODIUM LACTATE
     Indication: VEHICLE SOLUTION USE
     Dosage: 1 LITER (10 IU OF OXYTOCIN [SYNTOCINON] IN 1L OF RINGER^S?LACTATE SOLUTION [HARTMANN^S SOLUTION])
     Route: 065

REACTIONS (4)
  - Compartment syndrome [Recovering/Resolving]
  - Maternal exposure during delivery [Unknown]
  - Normal newborn [Unknown]
  - Drug ineffective [Unknown]
